FAERS Safety Report 7485157-0 (Version None)
Quarter: 2011Q2

REPORT INFORMATION
  Report Type: 
  Country: None (occurrence: None)
  Receive Date: 20110517
  Receipt Date: 20110516
  Transmission Date: 20111010
  Serious: Yes (Hospitalization)
  Sender: FDA-Public Use
  Company Number: IT-SANOFI-AVENTIS-2011SA029896

PATIENT
  Age: 81 Year
  Sex: Female

DRUGS (15)
  1. PLAVIX [Suspect]
     Route: 048
     Dates: start: 20110309, end: 20110511
  2. LASIX [Suspect]
     Route: 048
     Dates: start: 20110309, end: 20110511
  3. LANTUS [Concomitant]
     Route: 058
     Dates: start: 20110309, end: 20110511
  4. SIMVASTATIN [Concomitant]
     Route: 048
     Dates: start: 20110309, end: 20110511
  5. XALATAN [Concomitant]
     Dosage: DOSE:1 UNIT(S)
     Route: 047
     Dates: start: 20110309, end: 20110511
  6. FRAGMIN [Suspect]
     Indication: ISCHAEMIC HEART DISEASE PROPHYLAXIS
     Dosage: DOSE:5000 ANTI-XA ACTIVITY INTERNATIONAL UNIT(S)
     Route: 058
     Dates: start: 20110309, end: 20110511
  7. VALSARTAN/HYDROCHLOROTHIAZIDE [Suspect]
     Route: 048
     Dates: start: 20110309, end: 20110511
  8. FLUOXETINE [Concomitant]
     Route: 048
     Dates: start: 20110309, end: 20110511
  9. HUMALOG [Concomitant]
     Route: 058
     Dates: start: 20110309, end: 20110511
  10. LANSOX [Concomitant]
     Route: 048
     Dates: start: 20110309, end: 20110511
  11. NITRGLYCERIN TRANSDERMAL SYSTEM [Concomitant]
     Route: 062
     Dates: start: 20110309, end: 20110511
  12. ASPIRIN [Suspect]
     Route: 048
     Dates: start: 20110309, end: 20110511
  13. CARVEDILOL [Suspect]
     Route: 048
     Dates: start: 20110309, end: 20110511
  14. RANOLAZINE [Concomitant]
     Route: 048
     Dates: start: 20110309, end: 20110511
  15. TIMOPTOL [Concomitant]
     Route: 047
     Dates: start: 20110309, end: 20110511

REACTIONS (3)
  - SYNCOPE [None]
  - NAUSEA [None]
  - HYPOTENSION [None]
